FAERS Safety Report 9276071 (Version 1)
Quarter: 2012Q4

REPORT INFORMATION
  Report Type: Spontaneous
  Country: DE (occurrence: None)
  Receive Date: 20121109
  Receipt Date: 20121109
  Transmission Date: 20130627
  Serious: Yes (Other)
  Sender: FDA-Public Use
  Company Number: 2012S1000532

PATIENT
  Age: 72 Year
  Sex: Male
  Weight: 90 kg

DRUGS (3)
  1. CUBICIN [Suspect]
     Indication: POSTOPERATIVE WOUND INFECTION
     Dosage: 4 MG ; Q24H ; IV
     Route: 042
  2. LEVOFLOXACIN [Concomitant]
  3. ANTIBIOTICS [Concomitant]

REACTIONS (1)
  - Blood creatinine increased [None]
